FAERS Safety Report 9639150 (Version 1)
Quarter: 2013Q4

REPORT INFORMATION
  Report Type: Spontaneous
  Country: US (occurrence: None)
  Receive Date: 20131021
  Receipt Date: 20131021
  Transmission Date: 20140711
  Serious: Yes (Other)
  Sender: FDA-Public Use
  Company Number: RB-58504-2013

PATIENT
  Age: 67 Year
  Sex: Female

DRUGS (1)
  1. GUAIFENESIN W/DEXTROMETHORPHAN [Suspect]
     Indication: PRODUCT USED FOR UNKNOWN INDICATION
     Dosage: (TOOK RECOMMENDED DOSE, LAST USED PRODUCT ON 28-SEP-2013 ORAL)
     Route: 048
     Dates: start: 20130927

REACTIONS (5)
  - Haematemesis [None]
  - Dyspnoea [None]
  - Tremor [None]
  - Hyperhidrosis [None]
  - Asthenia [None]
